FAERS Safety Report 20884368 (Version 2)
Quarter: 2022Q2

REPORT INFORMATION
  Report Type: Spontaneous
  Country: US (occurrence: US)
  Receive Date: 20220527
  Receipt Date: 20220616
  Transmission Date: 20220720
  Serious: Yes (Other)
  Sender: FDA-Public Use
  Company Number: US-PFIZER INC-202200751264

PATIENT
  Age: 62 Year
  Sex: Female
  Weight: 69.4 kg

DRUGS (1)
  1. PRISTIQ EXTENDED-RELEASE [Suspect]
     Active Substance: DESVENLAFAXINE SUCCINATE
     Indication: Depression
     Dosage: 50 MG, 1X/DAY (ONCE A NIGHT 50MG BY MOUTH)
     Route: 048

REACTIONS (2)
  - Transient ischaemic attack [Unknown]
  - Panic reaction [Unknown]
